FAERS Safety Report 7980356-3 (Version None)
Quarter: 2011Q4

REPORT INFORMATION
  Report Type: 
  Country: None (occurrence: None)
  Receive Date: 20111214
  Receipt Date: 20111207
  Transmission Date: 20120403
  Serious: Yes (Death)
  Sender: FDA-Public Use
  Company Number: US-GILEAD-2011-0047193

PATIENT
  Sex: Female

DRUGS (8)
  1. SILDENAFIL [Suspect]
  2. CIALIS [Concomitant]
  3. ALBUTEROL [Concomitant]
  4. LETAIRIS [Suspect]
     Indication: PULMONARY ARTERIAL HYPERTENSION
     Dosage: 10 MG, UNK
     Route: 048
     Dates: start: 20110501, end: 20111101
  5. LASIX [Concomitant]
  6. NIFEDIPINE [Concomitant]
  7. SPIRIVA [Concomitant]
  8. TIOTROPIUM [Suspect]

REACTIONS (1)
  - CHRONIC OBSTRUCTIVE PULMONARY DISEASE [None]
